FAERS Safety Report 24199662 (Version 2)
Quarter: 2024Q3

REPORT INFORMATION
  Report Type: Report from Study
  Country: US (occurrence: US)
  Receive Date: 20240812
  Receipt Date: 20240823
  Transmission Date: 20241017
  Serious: No
  Sender: SANDOZ
  Company Number: US-SANDOZ-SDZ2024US071748

PATIENT
  Age: 54 Year
  Sex: Male

DRUGS (2)
  1. GLATOPA [Suspect]
     Active Substance: GLATIRAMER ACETATE
     Dosage: 40 MG, 3 X WEEK, SPACED 48 HOURS APART
     Route: 058
     Dates: start: 20240805
  2. GLATOPA [Suspect]
     Active Substance: GLATIRAMER ACETATE
     Indication: Multiple sclerosis
     Dosage: 3 X WEEK, SPACED AT LEAST 48 HOURS APART
     Route: 058
     Dates: start: 20240808

REACTIONS (10)
  - Flushing [Unknown]
  - Fatigue [Unknown]
  - Paraesthesia [Unknown]
  - Injection site pain [Unknown]
  - Pain [Unknown]
  - Injection site bruising [Recovered/Resolved]
  - Injection site haemorrhage [Recovered/Resolved]
  - Injection site paraesthesia [Recovered/Resolved]
  - Injection site discomfort [Recovered/Resolved]
  - Wrong technique in product usage process [Unknown]

NARRATIVE: CASE EVENT DATE: 20240805
